FAERS Safety Report 23076867 (Version 1)
Quarter: 2023Q4

REPORT INFORMATION
  Report Type: Spontaneous
  Country: BR (occurrence: BR)
  Receive Date: 20231018
  Receipt Date: 20231018
  Transmission Date: 20240110
  Serious: Yes (Hospitalization)
  Sender: FDA-Public Use
  Company Number: BR-STRIDES ARCOLAB LIMITED-2023SP015634

PATIENT
  Age: 52 Year
  Sex: Male

DRUGS (6)
  1. DEXAMETHASONE [Suspect]
     Active Substance: DEXAMETHASONE
     Indication: Disseminated cryptococcosis
     Dosage: 1 MILLIGRAM/KILOGRAM/DAY, SCHEDULED TO BE ADMINISTERED FOR 4 WEEKS AS INDUCTION PHASE
     Route: 065
  2. DEXAMETHASONE [Suspect]
     Active Substance: DEXAMETHASONE
     Indication: Cryptococcosis
  3. FLUCYTOSINE [Suspect]
     Active Substance: FLUCYTOSINE
     Indication: Disseminated cryptococcosis
     Dosage: 25 MILLIGRAM/KILOGRAM, QID, SCHEDULED TO BE ADMINISTERED FOR 4 WEEKS AS INDUCTION PHASE
     Route: 048
  4. FLUCYTOSINE [Suspect]
     Active Substance: FLUCYTOSINE
     Indication: Cryptococcosis
  5. AMPHOTERICIN B [Suspect]
     Active Substance: AMPHOTERICIN B
     Indication: Disseminated cryptococcosis
     Dosage: 3 MILLIGRAM/KILOGRAM/DAY, (SCHEDULED TO BE ADMINISTERED FOR 4 WEEKS AS INDUCTION PHASE DAY)
     Route: 042
  6. AMPHOTERICIN B [Suspect]
     Active Substance: AMPHOTERICIN B
     Indication: Cryptococcosis

REACTIONS (2)
  - Nephropathy toxic [Unknown]
  - Anaemia [Unknown]
